FAERS Safety Report 4652385-9 (Version None)
Quarter: 2005Q2

REPORT INFORMATION
  Report Type: 
  Country: None (occurrence: None)
  Receive Date: 20050502
  Receipt Date: 20050502
  Transmission Date: 20051028
  Serious: Yes (Hospitalization)
  Sender: FDA-Public Use
  Company Number: None

PATIENT
  Age: 60 Year
  Sex: Female
  Weight: 156.7 kg

DRUGS (13)
  1. ENOXAPARIN SODIUM [Suspect]
     Indication: ANTICOAGULANT THERAPY
     Dosage: 200  MG QAM   SUBCUTANEOUS
     Route: 058
     Dates: start: 20050312, end: 20050320
  2. ENOXAPARIN SODIUM [Suspect]
     Indication: THROMBOSIS PROPHYLAXIS
     Dosage: 200  MG QAM   SUBCUTANEOUS
     Route: 058
     Dates: start: 20050312, end: 20050320
  3. WARFARIN SODIUM [Concomitant]
  4. DESMOPRESSIN [Concomitant]
  5. VERAPAMIL [Concomitant]
  6. POTASSIUM CHLORIDE [Concomitant]
  7. FUROSEMIDE [Concomitant]
  8. SIMVASTATIN [Concomitant]
  9. LETROZOLE [Concomitant]
  10. VENLAFAXINE HCL [Concomitant]
  11. CYCLOBENZAPRINE HCL [Concomitant]
  12. ACETAMINOPHEN W/ CODEINE [Concomitant]
  13. NAPROXEN [Concomitant]

REACTIONS (3)
  - COAGULATION TEST ABNORMAL [None]
  - INTERNATIONAL NORMALISED RATIO DECREASED [None]
  - OPERATIVE HAEMORRHAGE [None]
